FAERS Safety Report 5848579-7 (Version None)
Quarter: 2008Q3

REPORT INFORMATION
  Report Type: 
  Country: None (occurrence: None)
  Receive Date: 20080815
  Receipt Date: 20080815
  Transmission Date: 20090109
  Serious: Yes (Life-Threatening, Other)
  Sender: FDA-Public Use
  Company Number: None

PATIENT
  Age: 67 Year
  Sex: Female
  Weight: 86.637 kg

DRUGS (2)
  1. HYDRALAZINE HCL [Suspect]
     Indication: PROPHYLAXIS
     Dosage: 25MG Q 6 HOURS, 1 DOSE
     Dates: start: 20080809, end: 20080809
  2. HYDRALAZINE HCL [Suspect]
     Indication: PULMONARY HYPERTENSION
     Dosage: 25MG Q 6 HOURS, 1 DOSE
     Dates: start: 20080809, end: 20080809

REACTIONS (9)
  - COUGH [None]
  - DYSPNOEA [None]
  - ERYTHEMA [None]
  - HYPOTENSION [None]
  - ILL-DEFINED DISORDER [None]
  - NAUSEA [None]
  - URTICARIA [None]
  - VOMITING [None]
  - WHEEZING [None]
